FAERS Safety Report 8858616 (Version 2)
Quarter: 2015Q3

REPORT INFORMATION
  Report Type: Report from Study
  Country: US (occurrence: US)
  Receive Date: 20121024
  Receipt Date: 20150904
  Transmission Date: 20151125
  Serious: Yes (Death, Hospitalization)
  Sender: FDA-Public Use
  Company Number: US-ROCHE-1133439

PATIENT
  Sex: Male

DRUGS (9)
  1. RAPTIVA [Suspect]
     Active Substance: EFALIZUMAB
     Indication: PUSTULAR PSORIASIS
     Route: 065
  2. RAPTIVA [Suspect]
     Active Substance: EFALIZUMAB
     Indication: PSORIATIC ARTHROPATHY
     Route: 065
  3. RAPTIVA [Suspect]
     Active Substance: EFALIZUMAB
     Indication: PSORIASIS
     Route: 065
     Dates: start: 200506
  4. RAPTIVA [Suspect]
     Active Substance: EFALIZUMAB
     Route: 065
  5. RAPTIVA [Suspect]
     Active Substance: EFALIZUMAB
     Route: 065
  6. CYCLOSPORIN [Concomitant]
     Active Substance: CYCLOSPORINE
  7. RAPTIVA [Suspect]
     Active Substance: EFALIZUMAB
     Route: 065
  8. RAPTIVA [Suspect]
     Active Substance: EFALIZUMAB
     Route: 065
  9. RAPTIVA [Suspect]
     Active Substance: EFALIZUMAB
     Route: 065

REACTIONS (5)
  - Death [Fatal]
  - Inflammation [Unknown]
  - Pain [Unknown]
  - Chronic obstructive pulmonary disease [Unknown]
  - Arthritis [Unknown]
